FAERS Safety Report 9121276 (Version 2)
Quarter: 2013Q1

REPORT INFORMATION
  Report Type: Spontaneous
  Country: BE (occurrence: BE)
  Receive Date: 20130225
  Receipt Date: 20130301
  Transmission Date: 20140127
  Serious: Yes (Hospitalization, Other)
  Sender: FDA-Public Use
  Company Number: BE-PFIZER INC-2013063860

PATIENT
  Age: 46 Year
  Sex: Female

DRUGS (2)
  1. VENLAFAXINE HYDROCHLORIDE [Suspect]
     Dosage: 3150 MG, UNK
     Route: 048
  2. VENLAFAXINE [Suspect]
     Dosage: 2100 MG, UNK
     Route: 048

REACTIONS (9)
  - Overdose [Recovered/Resolved]
  - Sinus tachycardia [Recovered/Resolved]
  - Hypotension [Recovered/Resolved]
  - Grand mal convulsion [Recovered/Resolved]
  - Oliguria [Recovered/Resolved]
  - Blood lactic acid increased [Recovered/Resolved]
  - Ejection fraction decreased [Recovered/Resolved]
  - Blood creatine phosphokinase increased [Recovered/Resolved]
  - Hypertension [Recovered/Resolved]
